FAERS Safety Report 5306067-0 (Version None)
Quarter: 2007Q2

REPORT INFORMATION
  Report Type: 
  Country: None (occurrence: None)
  Receive Date: 20070424
  Receipt Date: 20060803
  Transmission Date: 20071010
  Serious: No
  Sender: FDA-Public Use
  Company Number: US-BRISTOL-MYERS SQUIBB COMPANY-13465018

PATIENT
  Sex: Female

DRUGS (2)
  1. HYDREA [Suspect]
  2. INTERFERON [Suspect]

REACTIONS (1)
  - MALAISE [None]
